FAERS Safety Report 20895192 (Version 1)
Quarter: 2022Q2

REPORT INFORMATION
  Report Type: Spontaneous
  Country: US (occurrence: None)
  Receive Date: 20220528
  Receipt Date: 20220528
  Transmission Date: 20220720
  Serious: Yes (Other)
  Sender: FDA-Public Use
  Company Number: None

PATIENT
  Age: 60 Year
  Sex: Male
  Weight: 90.72 kg

DRUGS (1)
  1. LANTUS SOLOSTAR [Suspect]
     Active Substance: INSULIN GLARGINE
     Indication: Product used for unknown indication

REACTIONS (7)
  - Contusion [None]
  - Injury [None]
  - Product complaint [None]
  - Device difficult to use [None]
  - Device malfunction [None]
  - Device delivery system issue [None]
  - Incorrect dose administered by device [None]

NARRATIVE: CASE EVENT DATE: 20220420
